FAERS Safety Report 11806469 (Version 6)
Quarter: 2017Q1

REPORT INFORMATION
  Report Type: Report from Study
  Country: JP (occurrence: JP)
  Receive Date: 20151207
  Receipt Date: 20170306
  Transmission Date: 20170428
  Serious: Yes (Death, Hospitalization)
  Sender: FDA-Public Use
  Company Number: JP-EISAI MEDICAL RESEARCH-EC-2015-012502

PATIENT
  Age: 67 Year
  Sex: Female
  Weight: 65 kg

DRUGS (15)
  1. SELBEX [Concomitant]
     Active Substance: TEPRENONE
  2. KARY UNI [Concomitant]
     Active Substance: PIRENOXINE
  3. LENVIMA [Suspect]
     Active Substance: LENVATINIB
     Indication: PAPILLARY THYROID CANCER
     Route: 048
     Dates: start: 20150917, end: 20151005
  4. DRIED THYROID [Concomitant]
  5. ALFAROL [Concomitant]
     Active Substance: ALFACALCIDOL
  6. LENVIMA [Suspect]
     Active Substance: LENVATINIB
     Route: 048
     Dates: start: 20151114, end: 20151211
  7. THYRADIN S [Concomitant]
     Active Substance: LEVOTHYROXINE SODIUM
  8. PITAVASTATIN CA [Concomitant]
     Active Substance: PITAVASTATIN CALCIUM
  9. SUREPOST [Concomitant]
     Active Substance: REPAGLINIDE
  10. LENVIMA [Suspect]
     Active Substance: LENVATINIB
     Route: 048
     Dates: start: 20151006, end: 20151113
  11. LOXONIN [Concomitant]
     Active Substance: LOXOPROFEN SODIUM
  12. TENELIA [Concomitant]
     Active Substance: TENELIGLIPTIN
  13. CALCIUM LACTATE HYDRATE [Concomitant]
     Active Substance: CALCIUM LACTATE
  14. SEIBULE [Concomitant]
     Active Substance: MIGLITOL
  15. VALSARTAN. [Concomitant]
     Active Substance: VALSARTAN

REACTIONS (3)
  - Malignant neoplasm progression [Fatal]
  - Diarrhoea [Recovering/Resolving]
  - Cancer pain [Recovering/Resolving]

NARRATIVE: CASE EVENT DATE: 20150924
